FAERS Safety Report 23499591 (Version 1)
Quarter: 2024Q1

REPORT INFORMATION
  Report Type: Other
  Country: NZ (occurrence: NZ)
  Receive Date: 20240208
  Receipt Date: 20240208
  Transmission Date: 20240410
  Serious: Yes (Death, Other)
  Sender: FDA-Public Use
  Company Number: NZ-TASMAN PHARMA, INC.-2024TSM00027

PATIENT
  Age: 39 Year
  Sex: Female

DRUGS (4)
  1. CLOZAPINE [Suspect]
     Active Substance: CLOZAPINE
  2. IMIPRAMINE [Suspect]
     Active Substance: IMIPRAMINE
  3. COLOXYL [Concomitant]
  4. LACTULOSE [Concomitant]
     Active Substance: LACTULOSE

REACTIONS (4)
  - Completed suicide [Fatal]
  - Intentional overdose [Unknown]
  - Leukocytosis [Unknown]
  - Constipation [Unknown]
